FAERS Safety Report 6504013-5 (Version None)
Quarter: 2009Q4

REPORT INFORMATION
  Report Type: 
  Country: None (occurrence: None)
  Receive Date: 20091216
  Receipt Date: 20091216
  Transmission Date: 20100525
  Serious: Yes (Other)
  Sender: FDA-Public Use
  Company Number: None

PATIENT
  Sex: Female
  Weight: 62.1428 kg

DRUGS (4)
  1. ACTONEL [Suspect]
     Indication: OSTEOPENIA
     Dosage: 150 MG Q MONTH P.O.
     Route: 048
     Dates: start: 20090601
  2. ACTONEL [Suspect]
     Indication: OSTEOPOROSIS
     Dosage: 150 MG Q MONTH P.O.
     Route: 048
     Dates: start: 20090601
  3. ACTONEL [Suspect]
     Indication: OSTEOPENIA
     Dosage: 150 MG Q MONTH P.O.
     Route: 048
     Dates: start: 20091001
  4. ACTONEL [Suspect]
     Indication: OSTEOPOROSIS
     Dosage: 150 MG Q MONTH P.O.
     Route: 048
     Dates: start: 20091001

REACTIONS (2)
  - ACTIVITIES OF DAILY LIVING IMPAIRED [None]
  - MUSCLE STRAIN [None]
